FAERS Safety Report 10602088 (Version 2)
Quarter: 2014Q4

REPORT INFORMATION
  Report Type: Spontaneous
  Country: DK (occurrence: DK)
  Receive Date: 20141124
  Receipt Date: 20141230
  Transmission Date: 20150529
  Serious: Yes (Hospitalization)
  Sender: FDA-Public Use
  Company Number: DK-BRISTOL-MYERS SQUIBB COMPANY-21605696

PATIENT
  Age: 69 Year
  Sex: Female
  Weight: 76 kg

DRUGS (6)
  1. ELIQUIS [Suspect]
     Active Substance: APIXABAN
     Indication: ANTICOAGULANT THERAPY
     Dosage: STYRKE: 5 MG. DOSIS NEDSAT TIL 2.5 MG X2.
     Route: 065
     Dates: start: 20140902
  2. DIGOXIN. [Concomitant]
     Active Substance: DIGOXIN
     Indication: ATRIAL FIBRILLATION
     Dosage: UNK
  3. LOSARSTAD COMP [Concomitant]
     Indication: ATRIAL FIBRILLATION
  4. CALCI CHEW D3 [Concomitant]
     Active Substance: CALCIUM CARBONATE\CHOLECALCIFEROL
     Dosage: UNK
  5. METOPROLOL SUCCINATE. [Concomitant]
     Active Substance: METOPROLOL SUCCINATE
     Indication: ATRIAL FIBRILLATION
     Dosage: UNK
  6. PREDNISOLONE. [Concomitant]
     Active Substance: PREDNISOLONE
     Dosage: UNK

REACTIONS (3)
  - Cough [Not Recovered/Not Resolved]
  - Respiratory depression [Not Recovered/Not Resolved]
  - Breath sounds abnormal [Not Recovered/Not Resolved]

NARRATIVE: CASE EVENT DATE: 20140902
